FAERS Safety Report 9170821 (Version 1)
Quarter: 2013Q1

REPORT INFORMATION
  Report Type: Spontaneous
  Country: KR (occurrence: None)
  Receive Date: 20130311
  Receipt Date: 20130311
  Transmission Date: 20140127
  Serious: Yes (Other)
  Sender: FDA-Public Use
  Company Number: IMP_06591_2013

PATIENT
  Age: 16 Year
  Sex: Male

DRUGS (1)
  1. MINOCYCLINE (MINOCYCLINE) [Suspect]
     Indication: ACNE
     Dosage: 1 WEEK 2 DAYS UNTIL NOT CONTINUING
     Route: 048

REACTIONS (6)
  - Stevens-Johnson syndrome [None]
  - Parotitis [None]
  - Pyrexia [None]
  - Odynophagia [None]
  - Conjunctivitis [None]
  - Lymphadenopathy [None]
